FAERS Safety Report 8869661 (Version 1)
Quarter: 2012Q4

REPORT INFORMATION
  Report Type: 
  Country: US (occurrence: US)
  Receive Date: 20121028
  Receipt Date: 20121028
  Transmission Date: 20130627
  Serious: No
  Sender: FDA-Public Use
  Company Number: US-TEVA-366620USA

PATIENT
  Sex: Male

DRUGS (1)
  1. QVAR [Suspect]
     Dosage: 160 Microgram Daily; 2 puffs BID

REACTIONS (1)
  - Incorrect dose administered [Unknown]
